FAERS Safety Report 10042535 (Version 1)
Quarter: 2014Q1

REPORT INFORMATION
  Report Type: Spontaneous
  Country: US (occurrence: None)
  Receive Date: 20140325
  Receipt Date: 20140325
  Transmission Date: 20141002
  Serious: Yes (Hospitalization)
  Sender: FDA-Public Use
  Company Number: 2014P1002233

PATIENT
  Age: 60 Year
  Sex: Male

DRUGS (1)
  1. AMIODARONE [Suspect]
     Indication: ATRIAL FIBRILLATION

REACTIONS (4)
  - Dyspnoea [None]
  - Skin discolouration [None]
  - Pulmonary alveolar haemorrhage [None]
  - Drug-induced liver injury [None]
